FAERS Safety Report 10019176 (Version 1)
Quarter: 2014Q1

REPORT INFORMATION
  Report Type: Report from Study
  Country: US (occurrence: US)
  Receive Date: 20140318
  Receipt Date: 20140318
  Transmission Date: 20141002
  Serious: Yes (Disabling)
  Sender: FDA-Public Use
  Company Number: PHEH2013US026796

PATIENT
  Sex: Female

DRUGS (11)
  1. EXTAVIA [Suspect]
     Indication: MULTIPLE SCLEROSIS
     Dosage: 0.3 MG, QOD
     Route: 058
     Dates: start: 20120427
  2. ASPIRIN [Concomitant]
     Dosage: UNK UKN, UNK
  3. BACLOFEN [Concomitant]
     Dosage: UNK UKN, UNK
  4. GABAPENTIN [Concomitant]
     Dosage: UNK UKN, UNK
  5. HYDROCHLOROTHIAZIDE [Concomitant]
     Dosage: UNK UKN, UNK
  6. JANUVIA [Concomitant]
     Dosage: UNK UKN, UNK
  7. NAMENDA [Concomitant]
     Dosage: UNK UKN, UNK
  8. OMEPRAZOLE [Concomitant]
     Dosage: UNK UKN, UNK
  9. PERCOCET [Concomitant]
     Dosage: UNK UKN, UNK
  10. PRAVASTATIN SODIUM [Concomitant]
     Dosage: UNK UKN, UNK
  11. VITAMIN D3 [Concomitant]
     Dosage: UNK UKN, UNK

REACTIONS (1)
  - Movement disorder [Unknown]
